FAERS Safety Report 4319228-4 (Version None)
Quarter: 2004Q1

REPORT INFORMATION
  Report Type: 
  Country: None (occurrence: None)
  Receive Date: 20040316
  Receipt Date: 20040304
  Transmission Date: 20041129
  Serious: Yes (Hospitalization)
  Sender: FDA-Public Use
  Company Number: 04P-167-0252578

PATIENT
  Age: 74 Year
  Sex: Female
  Weight: 69 kg

DRUGS (6)
  1. HUMIRA [Suspect]
     Indication: RHEUMATOID ARTHRITIS
     Dosage: 40 MG, SUBCUTANEOUS
     Route: 058
     Dates: start: 20030513
  2. METHOTREXATE SODIUM [Concomitant]
  3. FOLIC ACID [Concomitant]
  4. CALCIUM CARBONATE [Concomitant]
  5. VALSARTAN [Concomitant]
  6. ISOSORBIDE [Concomitant]

REACTIONS (1)
  - ANKLE FRACTURE [None]
